FAERS Safety Report 24732915 (Version 1)
Quarter: 2024Q4

REPORT INFORMATION
  Report Type: Spontaneous
  Country: PT (occurrence: PT)
  Receive Date: 20241213
  Receipt Date: 20241213
  Transmission Date: 20250115
  Serious: Yes (Hospitalization, Other)
  Sender: SANOFI AVENTIS
  Company Number: None

PATIENT
  Age: 71 Year
  Sex: Female

DRUGS (4)
  1. DEXAMETHASONE [Suspect]
     Active Substance: DEXAMETHASONE
     Indication: Plasma cell leukaemia
     Dosage: UNK
  2. RASBURICASE [Suspect]
     Active Substance: RASBURICASE
     Indication: Plasma cell leukaemia
     Dosage: UNK
  3. LENALIDOMIDE [Suspect]
     Active Substance: LENALIDOMIDE
     Indication: Plasma cell leukaemia
     Dosage: UNK
  4. BORTEZOMIB ALVOGEN [Concomitant]
     Indication: Plasma cell leukaemia
     Dosage: UNK

REACTIONS (4)
  - Toxic skin eruption [Unknown]
  - Hepatotoxicity [Unknown]
  - Haematotoxicity [Unknown]
  - Haematological infection [Unknown]
